FAERS Safety Report 25726116 (Version 1)
Quarter: 2025Q3

REPORT INFORMATION
  Report Type: Report from Study
  Country: US (occurrence: US)
  Receive Date: 20250826
  Receipt Date: 20250826
  Transmission Date: 20251020
  Serious: Yes (Other)
  Sender: TAKEDA
  Company Number: US-TAKEDA-2024TUS009621

PATIENT
  Sex: Female

DRUGS (2)
  1. VEDOLIZUMAB [Suspect]
     Active Substance: VEDOLIZUMAB
     Indication: Colitis ulcerative
     Dosage: 108 MILLIGRAM, Q2WEEKS
  2. VEDOLIZUMAB [Suspect]
     Active Substance: VEDOLIZUMAB

REACTIONS (14)
  - Colitis ulcerative [Unknown]
  - Peripheral swelling [Unknown]
  - Inflammation [Unknown]
  - Injection site hypersensitivity [Recovered/Resolved]
  - Product dose omission issue [Unknown]
  - Sensitive skin [Recovered/Resolved]
  - Abdominal pain lower [Unknown]
  - Oesophageal discomfort [Unknown]
  - Frequent bowel movements [Unknown]
  - Erythema [Unknown]
  - Dyspepsia [Unknown]
  - Vomiting [Unknown]
  - Pain in extremity [Unknown]
  - Nausea [Unknown]
